FAERS Safety Report 9444928 (Version 1)
Quarter: 2013Q3

REPORT INFORMATION
  Report Type: Spontaneous
  Country: GB (occurrence: None)
  Receive Date: 20130723
  Receipt Date: 20130723
  Transmission Date: 20140515
  Serious: Yes (Death)
  Sender: FDA-Public Use
  Company Number: 2013036927

PATIENT
  Age: 65 Year
  Sex: Female

DRUGS (1)
  1. PRIVIGEN [Suspect]
     Indication: GUILLAIN-BARRE SYNDROME

REACTIONS (2)
  - Drug ineffective [None]
  - Respiratory arrest [None]
